FAERS Safety Report 12921646 (Version 1)
Quarter: 2016Q4

REPORT INFORMATION
  Report Type: Spontaneous
  Country: US (occurrence: US)
  Receive Date: 20161108
  Receipt Date: 20161108
  Transmission Date: 20170207
  Serious: Yes (Other)
  Sender: FDA-Public Use
  Company Number: US-CREALTA PHARMACEUTICALS-2016S1000017

PATIENT
  Sex: Male

DRUGS (5)
  1. KRYSTEXXA [Suspect]
     Active Substance: PEGLOTICASE
     Route: 042
  2. KRYSTEXXA [Suspect]
     Active Substance: PEGLOTICASE
     Route: 042
  3. KRYSTEXXA [Suspect]
     Active Substance: PEGLOTICASE
     Indication: PRODUCT USED FOR UNKNOWN INDICATION
     Route: 042
  4. KRYSTEXXA [Suspect]
     Active Substance: PEGLOTICASE
     Route: 042
  5. KRYSTEXXA [Suspect]
     Active Substance: PEGLOTICASE
     Route: 042

REACTIONS (2)
  - Rash generalised [None]
  - Infusion related reaction [Unknown]
